FAERS Safety Report 6866306-1 (Version None)
Quarter: 2010Q2

REPORT INFORMATION
  Report Type: 
  Country: None (occurrence: None)
  Receive Date: 20100602
  Receipt Date: 20090708
  Transmission Date: 20101027
  Serious: Yes (Other)
  Sender: FDA-Public Use
  Company Number: 201175USA

PATIENT
  Age: 67 Year
  Sex: Female

DRUGS (1)
  1. GABAPENTIN [Suspect]
     Indication: PETIT MAL EPILEPSY
     Dosage: 1200 MG (600 MG, 2 IN 1 D), ORAL
     Route: 048
     Dates: start: 20010101, end: 20090101

REACTIONS (4)
  - ASPIRATION [None]
  - DRUG INEFFECTIVE [None]
  - DYSPNOEA [None]
  - PETIT MAL EPILEPSY [None]
